FAERS Safety Report 4847963-8 (Version None)
Quarter: 2005Q4

REPORT INFORMATION
  Report Type: 
  Country: None (occurrence: None)
  Receive Date: 20051206
  Receipt Date: 20051116
  Transmission Date: 20060501
  Serious: Yes (Other)
  Sender: FDA-Public Use
  Company Number: US200511002002

PATIENT
  Sex: Female

DRUGS (2)
  1. FORTEO [Suspect]
     Dosage: 20 MICROGRAMS, SUBCUTANEOUS
     Route: 058
     Dates: start: 20030101, end: 20050101
  2. FORTEO PEN (250MCG/ML) 3ML PEN DISPOSABLE [Concomitant]

REACTIONS (1)
  - MULTIPLE MYELOMA [None]
